FAERS Safety Report 4861652-5 (Version None)
Quarter: 2005Q4

REPORT INFORMATION
  Report Type: 
  Country: None (occurrence: None)
  Receive Date: 20051130
  Receipt Date: 20050126
  Transmission Date: 20060501
  Serious: Yes (Other)
  Sender: FDA-Public Use
  Company Number: 200510124BWH

PATIENT
  Age: 42 Year
  Sex: Male
  Weight: 86.1834 kg

DRUGS (7)
  1. CIPRO [Suspect]
     Indication: EPIDIDYMITIS
     Dosage: 500 MG,BID
     Dates: start: 20040930, end: 20041013
  2. CIPRO [Suspect]
     Indication: EPIDIDYMITIS
     Dosage: 500 MG,BID
     Dates: start: 20041117, end: 20041126
  3. LIPITOR [Concomitant]
  4. TRICOR [Concomitant]
  5. NEXIUM [Concomitant]
  6. MAGNESIUM [Concomitant]
  7. MULTI-VITAMIN [Concomitant]

REACTIONS (20)
  - ANXIETY [None]
  - ARTHRALGIA [None]
  - CHILLS [None]
  - CLAUSTROPHOBIA [None]
  - DECREASED APPETITE [None]
  - DEPRESSION [None]
  - DIFFICULTY IN WALKING [None]
  - DRUG HYPERSENSITIVITY [None]
  - FATIGUE [None]
  - FEELING HOT [None]
  - HEADACHE [None]
  - INSOMNIA [None]
  - MUSCULOSKELETAL STIFFNESS [None]
  - PAIN IN EXTREMITY [None]
  - PANIC ATTACK [None]
  - POLYNEUROPATHY [None]
  - SPEECH DISORDER [None]
  - TENDON DISORDER [None]
  - TREMOR [None]
  - WEIGHT DECREASED [None]
